FAERS Safety Report 10333345 (Version 1)
Quarter: 2014Q3

REPORT INFORMATION
  Report Type: Spontaneous
  Country: JP (occurrence: JP)
  Receive Date: 20140722
  Receipt Date: 20140722
  Transmission Date: 20150326
  Serious: Yes (Other)
  Sender: FDA-Public Use
  Company Number: PHHY2012JP132416

PATIENT

DRUGS (2)
  1. DASATINIB [Suspect]
     Active Substance: DASATINIB
  2. TASIGNA [Suspect]
     Active Substance: NILOTINIB
     Dosage: 600 MG, UNK

REACTIONS (4)
  - Hypercalcaemia [Unknown]
  - Gastrointestinal disorder [Unknown]
  - Blast cell crisis [Unknown]
  - Malignant neoplasm progression [Unknown]
